FAERS Safety Report 20967258 (Version 1)
Quarter: 2022Q2

REPORT INFORMATION
  Report Type: Spontaneous
  Country: US (occurrence: None)
  Receive Date: 20220616
  Receipt Date: 20220616
  Transmission Date: 20220720
  Serious: Yes (Hospitalization)
  Sender: FDA-Public Use
  Company Number: None

PATIENT
  Age: 58 Year
  Sex: Female
  Weight: 83.4 kg

DRUGS (3)
  1. PACLITAXEL [Suspect]
     Active Substance: PACLITAXEL
     Dates: end: 20220610
  2. PERTUZUMAB [Suspect]
     Active Substance: PERTUZUMAB
     Dates: end: 20220603
  3. HERCEPTIN [Suspect]
     Active Substance: TRASTUZUMAB
     Dates: end: 20220603

REACTIONS (8)
  - Vomiting [None]
  - Diarrhoea [None]
  - Hyponatraemia [None]
  - Hypomagnesaemia [None]
  - Blood urea increased [None]
  - Blood creatinine increased [None]
  - Asthenia [None]
  - Blood bilirubin increased [None]

NARRATIVE: CASE EVENT DATE: 20220614
